FAERS Safety Report 8362651 (Version 3)
Quarter: 2015Q4

REPORT INFORMATION
  Report Type: Spontaneous
  Country: US (occurrence: US)
  Receive Date: 20120130
  Receipt Date: 20151104
  Transmission Date: 20160305
  Serious: No
  Sender: FDA-Public Use
  Company Number: US-PFIZER INC-2012019422

PATIENT
  Age: 64 Year
  Sex: Male

DRUGS (2)
  1. XALATAN [Suspect]
     Active Substance: LATANOPROST
     Indication: GLAUCOMA
     Dosage: 1 DF, UNK (GT OR QHS)
     Route: 061
     Dates: start: 2000
  2. TIMOLOL. [Concomitant]
     Active Substance: TIMOLOL
     Indication: GLAUCOMA
     Dosage: 0.5 UNK, UNK

REACTIONS (3)
  - Drug ineffective [Unknown]
  - Dry eye [Unknown]
  - Eye irritation [Unknown]
